FAERS Safety Report 20747218 (Version 2)
Quarter: 2022Q2

REPORT INFORMATION
  Report Type: Spontaneous
  Country: US (occurrence: US)
  Receive Date: 20220425
  Receipt Date: 20220623
  Transmission Date: 20220721
  Serious: Yes (Hospitalization)
  Sender: FDA-Public Use
  Company Number: US-LA JOLLA PHARMACEUTICAL COMPANY-0000411

PATIENT

DRUGS (3)
  1. GIAPREZA [Suspect]
     Active Substance: ANGIOTENSIN II
     Indication: Vasoplegia syndrome
     Dosage: 40 (STARTING DOSE)
     Dates: start: 20220402
  2. GIAPREZA [Suspect]
     Active Substance: ANGIOTENSIN II
     Dosage: 30 (MAINTENANCE DOSE)
     Dates: end: 20220403
  3. CEFEPIME [Suspect]
     Active Substance: CEFEPIME HYDROCHLORIDE
     Indication: Product used for unknown indication
     Route: 065

REACTIONS (3)
  - Vasculitis [Unknown]
  - Rash [Unknown]
  - Peripheral ischaemia [Unknown]

NARRATIVE: CASE EVENT DATE: 20220404
